FAERS Safety Report 19466074 (Version 2)
Quarter: 2021Q2

REPORT INFORMATION
  Report Type: Spontaneous
  Country: FR (occurrence: FR)
  Receive Date: 20210626
  Receipt Date: 20210626
  Transmission Date: 20210717
  Serious: Yes (Hospitalization)
  Sender: FDA-Public Use
  Company Number: FR-CANTON LABORATORIES, LLC-2113153

PATIENT
  Age: 28 Year
  Sex: Male

DRUGS (1)
  1. NAPROSYN [Suspect]
     Active Substance: NAPROXEN
     Indication: ARTHRALGIA
     Route: 048

REACTIONS (13)
  - Blood phosphorus increased [Unknown]
  - Trousseau^s sign [Unknown]
  - Dyspnoea [Unknown]
  - Hypocalcaemia [Recovered/Resolved]
  - Blood creatine phosphokinase increased [Unknown]
  - C-reactive protein increased [Recovering/Resolving]
  - Muscle spasms [Unknown]
  - Leukocytosis [Unknown]
  - Generalised oedema [Unknown]
  - Weight increased [Unknown]
  - Psoriasis [Recovering/Resolving]
  - Tachycardia [Unknown]
  - Hypomagnesaemia [Unknown]
